FAERS Safety Report 20440342 (Version 4)
Quarter: 2022Q2

REPORT INFORMATION
  Report Type: Report from Study
  Country: US (occurrence: US)
  Receive Date: 20220207
  Receipt Date: 20220428
  Transmission Date: 20220720
  Serious: Yes (Hospitalization)
  Sender: FDA-Public Use
  Company Number: US-BIOGEN-2022BI01094338

PATIENT
  Sex: Male
  Weight: 72.3 kg

DRUGS (11)
  1. TYSABRI [Suspect]
     Active Substance: NATALIZUMAB
     Indication: Secondary progressive multiple sclerosis
     Dosage: INFUSED OVER 1 HOUR
     Route: 042
     Dates: start: 20140404, end: 20190422
  2. TYSABRI [Suspect]
     Active Substance: NATALIZUMAB
     Dosage: INFUSED OVER 1 HOUR
     Route: 042
     Dates: start: 20210303, end: 20210719
  3. DALFAMPRIDINE [Suspect]
     Active Substance: DALFAMPRIDINE
     Indication: Product used for unknown indication
     Route: 065
  4. AMPYRA [Suspect]
     Active Substance: DALFAMPRIDINE
     Indication: Product used for unknown indication
     Route: 065
  5. AMANTADINE HYDROCHLORIDE [Concomitant]
     Active Substance: AMANTADINE HYDROCHLORIDE
     Indication: Product used for unknown indication
     Route: 048
  6. VITAMIN D3 [Concomitant]
     Active Substance: CHOLECALCIFEROL
     Indication: Product used for unknown indication
     Dosage: ONCE A WEEK FOR 12 DOSES
     Route: 048
  7. CYCLOBENZAPRINE HYDROCHLORIDE [Concomitant]
     Active Substance: CYCLOBENZAPRINE HYDROCHLORIDE
     Indication: Product used for unknown indication
     Route: 048
  8. CYCLOBENZAPRINE HYDROCHLORIDE [Concomitant]
     Active Substance: CYCLOBENZAPRINE HYDROCHLORIDE
     Route: 048
  9. KESIMPTA [Concomitant]
     Active Substance: OFATUMUMAB
     Indication: Product used for unknown indication
     Dosage: INJECT INTO SKIN. INJECT 20 MG ONCE WEEKLY FOR THREE WEEKS.HOLD FOR ONE WEEK. THEN, INJECT 20 MG ...
     Route: 058
  10. KESIMPTA [Concomitant]
     Active Substance: OFATUMUMAB
     Route: 048
  11. CIPROFLOXACIN HYDROCHLORIDE [Concomitant]
     Active Substance: CIPROFLOXACIN HYDROCHLORIDE
     Indication: Product used for unknown indication
     Route: 048

REACTIONS (2)
  - Fall [Recovered/Resolved]
  - Hip fracture [Unknown]

NARRATIVE: CASE EVENT DATE: 20210101
